FAERS Safety Report 7158636-3 (Version None)
Quarter: 2010Q4

REPORT INFORMATION
  Report Type: 
  Country: None (occurrence: None)
  Receive Date: 20101214
  Receipt Date: 20100617
  Transmission Date: 20110411
  Serious: No
  Sender: FDA-Public Use
  Company Number: US-ASTRAZENECA-2010SE28444

PATIENT
  Sex: Male

DRUGS (1)
  1. CRESTOR [Suspect]
     Dosage: DAILY
     Route: 048
     Dates: start: 20100417

REACTIONS (2)
  - INSOMNIA [None]
  - NERVOUSNESS [None]
